FAERS Safety Report 5479206-9 (Version None)
Quarter: 2007Q4

REPORT INFORMATION
  Report Type: 
  Country: None (occurrence: None)
  Receive Date: 20071008
  Receipt Date: 20070926
  Transmission Date: 20080405
  Serious: Yes (Other)
  Sender: FDA-Public Use
  Company Number: GB-JNJFOC-20070903496

PATIENT
  Age: 49 Year
  Sex: Male

DRUGS (2)
  1. LEVOFLOXACIN [Suspect]
     Indication: LOWER RESPIRATORY TRACT INFECTION
     Route: 042
  2. AMOXICILLIN + CLAVULANATE POTASSIUM [Suspect]
     Indication: LOWER RESPIRATORY TRACT INFECTION
     Route: 065

REACTIONS (2)
  - ACUTE GENERALISED EXANTHEMATOUS PUSTULOSIS [None]
  - TOXIC EPIDERMAL NECROLYSIS [None]
